FAERS Safety Report 19515567 (Version 1)
Quarter: 2021Q3

REPORT INFORMATION
  Report Type: Spontaneous
  Country: CA (occurrence: CA)
  Receive Date: 20210710
  Receipt Date: 20210710
  Transmission Date: 20211014
  Serious: Yes (Death)
  Sender: FDA-Public Use
  Company Number: CA-ROCHE-2865325

PATIENT
  Age: 38 Year
  Sex: Male

DRUGS (14)
  1. VANCOMYCIN [Concomitant]
     Active Substance: VANCOMYCIN
  2. EPINEPHRINE. [Concomitant]
     Active Substance: EPINEPHRINE
  3. IMIPENEM AND CILASTATIN [Concomitant]
     Active Substance: CILASTATIN SODIUM\IMIPENEM
     Dosage: POWDER FOR SOLUTION INTRAVENOUS
  4. HYDROCORTISONE. [Concomitant]
     Active Substance: HYDROCORTISONE
  5. PROPOFOL. [Concomitant]
     Active Substance: PROPOFOL
  6. ACTEMRA [Suspect]
     Active Substance: TOCILIZUMAB
     Indication: COVID-19
     Route: 042
  7. KETAMINE [Concomitant]
     Active Substance: KETAMINE
  8. ROCURONIUM [Concomitant]
     Active Substance: ROCURONIUM BROMIDE
  9. VASOPRESSIN. [Concomitant]
     Active Substance: VASOPRESSIN
  10. PANTOPRAZOLE [Concomitant]
     Active Substance: PANTOPRAZOLE
  11. CYCLOSPORINE. [Concomitant]
     Active Substance: CYCLOSPORINE
  12. HYDROMORPHONE [Concomitant]
     Active Substance: HYDROMORPHONE
  13. NOREPINEPHRINE. [Concomitant]
     Active Substance: NOREPINEPHRINE
  14. MICAFUNGIN. [Concomitant]
     Active Substance: MICAFUNGIN SODIUM
     Dosage: POWDER FOR SOLUTION INTRAVENOUS

REACTIONS (6)
  - Complications of transplanted kidney [Fatal]
  - Functional gastrointestinal disorder [Fatal]
  - Septic shock [Fatal]
  - Sepsis [Fatal]
  - Respiratory failure [Fatal]
  - Acute respiratory distress syndrome [Fatal]
